FAERS Safety Report 17047228 (Version 1)
Quarter: 2019Q4

REPORT INFORMATION
  Report Type: Spontaneous
  Country: US (occurrence: US)
  Receive Date: 20191119
  Receipt Date: 20191119
  Transmission Date: 20200122
  Serious: Yes (Hospitalization, Other)
  Sender: FDA-Public Use
  Company Number: US-IBIGEN-2019.07598

PATIENT
  Age: 66 Year
  Sex: Female

DRUGS (1)
  1. NAFCILLIN [Suspect]
     Active Substance: NAFCILLIN SODIUM
     Dosage: 2G Q4 HR FOR TOTAL 6 WEEKS.

REACTIONS (4)
  - Heart rate increased [Unknown]
  - Rash pruritic [Unknown]
  - Febrile neutropenia [Unknown]
  - Pyrexia [Unknown]
